FAERS Safety Report 11392043 (Version 1)
Quarter: 2015Q3

REPORT INFORMATION
  Report Type: Spontaneous
  Country: TW (occurrence: None)
  Receive Date: 20150814
  Receipt Date: 20150814
  Transmission Date: 20151125
  Serious: No
  Sender: FDA-Public Use
  Company Number: 2015RR-101635

PATIENT
  Age: 56 Year
  Sex: Male

DRUGS (5)
  1. ASPIRIN (ACETYLSALICYLIC ACID) UNKNOWN 325MG [Suspect]
     Active Substance: ASPIRIN
     Indication: ANTIPLATELET THERAPY
     Dosage: 300 MG, 1 DOSE
  2. ASPIRIN (ACETYLSALICYLIC ACID) UNKNOWN 325MG [Suspect]
     Active Substance: ASPIRIN
     Indication: ANTIPLATELET THERAPY
  3. CLOPIDOGREL (CLOPIDOGREL) UNKNOWN [Suspect]
     Active Substance: CLOPIDOGREL BISULFATE
     Indication: ANTIPLATELET THERAPY
  4. HEPARIN [Concomitant]
     Active Substance: HEPARIN SODIUM
  5. CLOPIDOGREL (CLOPIDOGREL) UNKNOWN [Suspect]
     Active Substance: CLOPIDOGREL BISULFATE
     Indication: ANTIPLATELET THERAPY
     Dosage: 300 MG, 1 DOSE

REACTIONS (2)
  - Haematuria [None]
  - Muscle haemorrhage [None]
